FAERS Safety Report 20041927 (Version 2)
Quarter: 2021Q4

REPORT INFORMATION
  Report Type: Report from Study
  Country: US (occurrence: US)
  Receive Date: 20211108
  Receipt Date: 20211125
  Transmission Date: 20220303
  Serious: Yes (Hospitalization, Other)
  Sender: FDA-Public Use
  Company Number: US-GILEAD-2021-0554804

PATIENT
  Age: 44 Year
  Sex: Male

DRUGS (12)
  1. AZTREONAM LYSINE [Suspect]
     Active Substance: AZTREONAM LYSINE
     Indication: Cystic fibrosis
     Dosage: 75 MG, TID 28 DAYS ON, 28 DAYS OFF
     Route: 055
     Dates: start: 202105
  2. ULTRASE [PANCRELIPASE] [Concomitant]
  3. NUTREN PULMONARY [Concomitant]
  4. PEPTAMEN [Concomitant]
  5. RAPAMUNE [Concomitant]
     Active Substance: SIROLIMUS
     Dosage: UNK
  6. ALBUTEROL SULFATE [Concomitant]
     Active Substance: ALBUTEROL SULFATE
     Dosage: UNK
  7. PROGRAF [Concomitant]
     Active Substance: TACROLIMUS
     Dosage: UNK
  8. PREDNISONE [Concomitant]
     Active Substance: PREDNISONE
     Dosage: UNK
  9. ACYCLOVIR [Concomitant]
     Active Substance: ACYCLOVIR
     Dosage: UNK
  10. LISINOPRIL [Concomitant]
     Active Substance: LISINOPRIL
     Dosage: UNK
  11. FOLIC ACID [Concomitant]
     Active Substance: FOLIC ACID
     Dosage: UNK
  12. VITAMINS [Concomitant]
     Active Substance: VITAMINS
     Dosage: UNK

REACTIONS (2)
  - Intestinal obstruction [Recovered/Resolved]
  - Pneumonia pseudomonal [Unknown]

NARRATIVE: CASE EVENT DATE: 20211022
